FAERS Safety Report 7584665-1 (Version None)
Quarter: 2011Q2

REPORT INFORMATION
  Report Type: 
  Country: None (occurrence: None)
  Receive Date: 20110630
  Receipt Date: 20110617
  Transmission Date: 20111010
  Serious: Yes (Death)
  Sender: FDA-Public Use
  Company Number: CO-ROCHE-783493

PATIENT
  Sex: Male

DRUGS (1)
  1. MYCOPHENOLATE MEFETIL [Suspect]
     Route: 048
     Dates: start: 19921212

REACTIONS (1)
  - INTESTINAL INFARCTION [None]
